FAERS Safety Report 5328611-X (Version None)
Quarter: 2007Q2

REPORT INFORMATION
  Report Type: 
  Country: None (occurrence: None)
  Receive Date: 20070518
  Receipt Date: 20070508
  Transmission Date: 20071010
  Serious: Yes (Hospitalization, Disabling)
  Sender: FDA-Public Use
  Company Number: PHHO2003JP04434

PATIENT
  Age: 65 Year
  Sex: Female
  Weight: 50 kg

DRUGS (11)
  1. GLEEVEC [Suspect]
     Indication: CHRONIC MYELOID LEUKAEMIA
     Dosage: 400 MG, QD
     Route: 048
     Dates: start: 20020909, end: 20020930
  2. GLEEVEC [Suspect]
     Dosage: 300 MG, QD
     Route: 048
     Dates: start: 20021011, end: 20021210
  3. GLEEVEC [Suspect]
     Dosage: 400 MG, QD
     Route: 048
     Dates: start: 20021211, end: 20030219
  4. GLEEVEC [Suspect]
     Dosage: 200 MG, QD
     Route: 048
     Dates: start: 20030318
  5. MS CONTIN [Concomitant]
  6. CODEINE PHOSPHATE [Concomitant]
  7. PREDONINE [Suspect]
     Indication: ARTHRALGIA
     Dosage: 10MG
     Route: 048
     Dates: start: 20021007
  8. MUCOSTA [Concomitant]
  9. GLORIAMIN [Concomitant]
  10. MAGNESIUM OXIDE [Concomitant]
  11. AMOBAN [Concomitant]

REACTIONS (9)
  - DYSPNOEA [None]
  - EOSINOPHILIA [None]
  - ERYTHEMA [None]
  - HERPES ZOSTER [None]
  - INTERSTITIAL LUNG DISEASE [None]
  - PAIN [None]
  - PHOTOPHOBIA [None]
  - PHOTOSENSITIVITY REACTION [None]
  - TOXIC SKIN ERUPTION [None]
